FAERS Safety Report 7100304-8 (Version None)
Quarter: 2010Q4

REPORT INFORMATION
  Report Type: 
  Country: None (occurrence: None)
  Receive Date: 20101112
  Receipt Date: 20101102
  Transmission Date: 20110411
  Serious: Yes (Hospitalization)
  Sender: FDA-Public Use
  Company Number: FR-AMGEN-FRASP2010003052

PATIENT

DRUGS (5)
  1. ENBREL [Suspect]
     Indication: ANKYLOSING SPONDYLITIS
     Route: 058
     Dates: start: 20061201, end: 20100929
  2. MOPRAL [Concomitant]
     Route: 048
  3. CELIPROLOL [Concomitant]
     Route: 048
  4. SKENAN [Concomitant]
     Route: 048
  5. DAFALGAN [Concomitant]
     Route: 048

REACTIONS (4)
  - ANAEMIA HAEMOLYTIC AUTOIMMUNE [None]
  - CHOLECYSTITIS ACUTE [None]
  - RENAL CANCER [None]
  - RENAL NEOPLASM [None]
